FAERS Safety Report 4443648-0 (Version None)
Quarter: 2004Q3

REPORT INFORMATION
  Report Type: 
  Country: None (occurrence: None)
  Receive Date: 20040827
  Receipt Date: 20040812
  Transmission Date: 20050211
  Serious: Yes (Other)
  Sender: FDA-Public Use
  Company Number: B0342034A

PATIENT
  Age: 21 Year
  Sex: Female

DRUGS (10)
  1. MYLERAN [Suspect]
     Dosage: 4 MG/KG/DAY
  2. CYCLOPHOSPHAMIDE [Concomitant]
  3. VINCRISTINE [Concomitant]
  4. MERCAPTOPURINE [Concomitant]
  5. METHOTREXATE [Concomitant]
  6. DAUNORUBICIN [Concomitant]
  7. PREDNISONE [Concomitant]
  8. PHENOBARBITONE [Concomitant]
  9. CYCLOSPORINE [Concomitant]
  10. DEXAMETHASONE [Concomitant]

REACTIONS (1)
  - GRAND MAL CONVULSION [None]
